FAERS Safety Report 8431260-8 (Version None)
Quarter: 2012Q2

REPORT INFORMATION
  Report Type: 
  Country: None (occurrence: None)
  Receive Date: 20120613
  Receipt Date: 20120601
  Transmission Date: 20120825
  Serious: Yes (Hospitalization, Other)
  Sender: FDA-Public Use
  Company Number: GR-PAR PHARMACEUTICAL, INC-2012SCPR004430

PATIENT

DRUGS (13)
  1. ALLOPURINOL [Concomitant]
     Indication: PRODUCT USED FOR UNKNOWN INDICATION
     Dosage: UNK, UNKNOWN
     Route: 065
     Dates: start: 20040101
  2. DEXAMETHASONE [Suspect]
     Dosage: 8 MG, UNKNOWN
     Route: 042
     Dates: start: 20120402, end: 20120409
  3. DEXAMETHASONE [Suspect]
     Indication: MULTIPLE MYELOMA
     Dosage: 28 MG, / DAY
     Route: 048
     Dates: start: 20120402, end: 20120409
  4. DEXAMETHASONE [Suspect]
     Dosage: DOSE REDUCED, UNKNOWN
     Route: 065
     Dates: start: 20120410
  5. ACETYLSALICYLIC ACID SRT [Concomitant]
     Indication: PRODUCT USED FOR UNKNOWN INDICATION
     Dosage: UNK, UNKNOWN
     Route: 065
     Dates: start: 20110714
  6. ELOTUZUMAB [Suspect]
     Indication: MULTIPLE MYELOMA
     Dosage: 700 MG, UNKNOWN
     Route: 042
     Dates: start: 20120402, end: 20120409
  7. IMDUR [Concomitant]
     Indication: PRODUCT USED FOR UNKNOWN INDICATION
     Dosage: UNK, UNKNOWN
     Route: 065
     Dates: start: 20060101
  8. LENALIDOMIDE [Suspect]
     Indication: MULTIPLE MYELOMA
     Dosage: 25 MG, UNKNOWN
     Route: 048
     Dates: start: 20120402, end: 20120409
  9. OMEPRAZOLE [Concomitant]
     Indication: PRODUCT USED FOR UNKNOWN INDICATION
     Dosage: UNK UNK, UNKNOWN
     Route: 065
     Dates: start: 20110714
  10. LENALIDOMIDE [Suspect]
     Dosage: 10 MG / DAY (REDUCED DOSE)
     Route: 048
     Dates: start: 20120410
  11. VALACICLOVIR [Concomitant]
     Indication: PRODUCT USED FOR UNKNOWN INDICATION
     Dosage: UNK UNK, UNKNOWN
     Route: 065
     Dates: start: 20110714
  12. NEBIVOLOL [Concomitant]
     Indication: PRODUCT USED FOR UNKNOWN INDICATION
     Dosage: UNK, UNKNOWN
     Route: 065
     Dates: start: 20060101
  13. AMLODIPINE [Concomitant]
     Indication: PRODUCT USED FOR UNKNOWN INDICATION
     Dosage: UNK, UNKNOWN
     Route: 065
     Dates: start: 20010101

REACTIONS (3)
  - LOWER RESPIRATORY TRACT INFECTION [None]
  - PYREXIA [None]
  - DYSPNOEA [None]
